FAERS Safety Report 14472673 (Version 1)
Quarter: 2018Q1

REPORT INFORMATION
  Report Type: Spontaneous
  Country: FR (occurrence: FR)
  Receive Date: 20180201
  Receipt Date: 20180201
  Transmission Date: 20180509
  Serious: Yes (Hospitalization, Other)
  Sender: FDA-Public Use
  Company Number: FR-B.I. PHARMACEUTICALS,INC./RIDGEFIELD-2018-12-000266

PATIENT
  Age: 62 Year
  Sex: Male
  Weight: 96 kg

DRUGS (1)
  1. OFEV [Suspect]
     Active Substance: NINTEDANIB
     Indication: PULMONARY FIBROSIS
     Route: 048
     Dates: start: 20170126, end: 20171031

REACTIONS (2)
  - Pulmonary embolism [Recovering/Resolving]
  - Respiratory distress [Recovering/Resolving]

NARRATIVE: CASE EVENT DATE: 20171031
